FAERS Safety Report 5355779-1 (Version None)
Quarter: 2007Q2

REPORT INFORMATION
  Report Type: 
  Country: None (occurrence: None)
  Receive Date: 20070613
  Receipt Date: 20070606
  Transmission Date: 20071010
  Serious: Yes (Other)
  Sender: FDA-Public Use
  Company Number: JP-MERCK-0706USA00241

PATIENT
  Age: 44 Year
  Sex: Female
  Weight: 49 kg

DRUGS (2)
  1. ZOCOR [Suspect]
     Indication: HYPERLIPIDAEMIA
     Route: 048
     Dates: start: 20070517, end: 20070524
  2. URSO 250 [Concomitant]
     Indication: HEPATIC FUNCTION ABNORMAL
     Route: 048
     Dates: start: 20061027, end: 20070531

REACTIONS (2)
  - MALAISE [None]
  - OEDEMA PERIPHERAL [None]
